FAERS Safety Report 6589464-5 (Version None)
Quarter: 2010Q1

REPORT INFORMATION
  Report Type: 
  Country: None (occurrence: None)
  Receive Date: 20100218
  Receipt Date: 20100215
  Transmission Date: 20100710
  Serious: Yes (Death)
  Sender: FDA-Public Use
  Company Number: DE-MERCK-1002DEU00079

PATIENT
  Age: 63 Year
  Sex: Female

DRUGS (79)
  1. PRIMAXIN [Suspect]
     Indication: INFECTION
     Route: 042
     Dates: start: 20090104, end: 20090119
  2. SOLU-DECORTIN-H [Suspect]
     Indication: ACUTE MYELOID LEUKAEMIA
     Route: 051
     Dates: start: 20081231
  3. CYMEVENE IV [Suspect]
     Indication: INFECTION
     Route: 051
     Dates: start: 20090105, end: 20090123
  4. ACYCLOVIR [Suspect]
     Indication: HERPES VIRUS INFECTION
     Route: 051
     Dates: start: 20090107, end: 20090121
  5. MYFORTIC [Suspect]
     Indication: ACUTE MYELOID LEUKAEMIA
     Route: 048
     Dates: start: 20090110, end: 20090119
  6. UROXATRAL [Suspect]
     Indication: URINARY RETENTION
     Route: 048
     Dates: start: 20090113
  7. NOVALGIN [Suspect]
     Indication: PAIN
     Route: 051
     Dates: start: 20090114, end: 20090117
  8. BUSCOPAN [Suspect]
     Indication: PAIN
     Route: 042
     Dates: start: 20090114, end: 20090117
  9. BUSCOPAN [Suspect]
     Route: 042
     Dates: start: 20090122, end: 20090123
  10. SPASMEX [Suspect]
     Indication: PAIN
     Route: 042
     Dates: start: 20090115, end: 20090118
  11. SPASMEX [Suspect]
     Route: 042
     Dates: start: 20090120, end: 20090120
  12. STILNOX [Suspect]
     Indication: SLEEP DISORDER
     Route: 048
     Dates: start: 20090117, end: 20090117
  13. STILNOX [Suspect]
     Route: 048
     Dates: start: 20090120
  14. VERGENTAN [Suspect]
     Indication: NAUSEA
     Route: 042
     Dates: start: 20090118, end: 20090118
  15. NOVALGIN [Suspect]
     Route: 048
     Dates: start: 20090118, end: 20090118
  16. NOVALGIN [Suspect]
     Route: 048
     Dates: start: 20090120, end: 20090121
  17. TEICOPLANIN [Suspect]
     Indication: INFECTION
     Route: 042
     Dates: start: 20090118
  18. NORAVID [Suspect]
     Indication: THROMBOSIS PROPHYLAXIS
     Route: 048
     Dates: end: 20090113
  19. KONAKION [Suspect]
     Route: 051
     Dates: start: 20081227, end: 20081227
  20. KONAKION [Suspect]
     Route: 051
     Dates: start: 20090114, end: 20090114
  21. AMBISOME [Suspect]
     Indication: FUNGAL INFECTION
     Route: 042
     Dates: end: 20090123
  22. FORTUM [Suspect]
     Indication: INFECTION
     Route: 042
     Dates: end: 20090105
  23. FORTUM [Suspect]
     Route: 042
     Dates: start: 20090118
  24. RAPAMUNE [Suspect]
     Indication: ACUTE MYELOID LEUKAEMIA
     Route: 048
     Dates: end: 20090116
  25. DILAUDID [Suspect]
     Indication: PAIN
     Route: 042
     Dates: start: 20090105, end: 20090119
  26. DILAUDID [Suspect]
     Route: 042
     Dates: start: 20081230, end: 20081230
  27. DOXYCYCLINE [Suspect]
     Indication: INFECTION
     Route: 042
     Dates: start: 20081230, end: 20090119
  28. CELLCEPT [Suspect]
     Indication: ACUTE MYELOID LEUKAEMIA
     Route: 042
     Dates: start: 20081230, end: 20090109
  29. CELLCEPT [Suspect]
     Route: 042
     Dates: start: 20090118
  30. PERFALGAN [Concomitant]
     Indication: PYREXIA
     Route: 042
     Dates: end: 20081230
  31. PERFALGAN [Concomitant]
     Route: 042
     Dates: start: 20090101, end: 20090102
  32. PERFALGAN [Concomitant]
     Route: 042
     Dates: start: 20090120, end: 20090120
  33. BLOOD CELLS, RED [Concomitant]
     Route: 042
     Dates: start: 20081227, end: 20081227
  34. BLOOD CELLS, RED [Concomitant]
     Route: 042
     Dates: start: 20081231, end: 20081231
  35. BLOOD CELLS, RED [Concomitant]
     Route: 042
     Dates: start: 20090112, end: 20090114
  36. BLOOD CELLS, RED [Concomitant]
     Route: 042
     Dates: start: 20090121, end: 20090121
  37. URSO FALK [Concomitant]
     Indication: CHOLELITHIASIS
     Route: 048
  38. DEXTROSE [Concomitant]
     Route: 042
  39. PANTOZOL [Concomitant]
     Indication: PROPHYLAXIS AGAINST GASTROINTESTINAL ULCER
     Route: 048
  40. MAGNESIUM SULFATE [Concomitant]
     Route: 042
  41. L-THYROXIN [Concomitant]
     Indication: HYPOTHYROIDISM
     Route: 048
  42. NEPHRO C [Concomitant]
     Route: 042
  43. AMINO ACIDS (UNSPECIFIED) [Concomitant]
     Route: 042
  44. LIPIDS (UNSPECIFIED) [Concomitant]
     Route: 042
  45. CERNEVIT-12 [Concomitant]
     Route: 042
     Dates: end: 20090101
  46. CERNEVIT-12 [Concomitant]
     Route: 042
     Dates: start: 20090103, end: 20090114
  47. CERNEVIT-12 [Concomitant]
     Route: 042
     Dates: start: 20090116, end: 20090122
  48. CERNEVIT-12 [Concomitant]
     Route: 042
     Dates: start: 20090124, end: 20090124
  49. ASCORBIC ACID [Concomitant]
     Route: 042
     Dates: start: 20081228, end: 20081228
  50. ASCORBIC ACID [Concomitant]
     Route: 042
     Dates: start: 20090103, end: 20090103
  51. ASCORBIC ACID [Concomitant]
     Route: 042
     Dates: start: 20090106, end: 20090106
  52. ASCORBIC ACID [Concomitant]
     Route: 042
     Dates: start: 20090110, end: 20090110
  53. ASCORBIC ACID [Concomitant]
     Route: 042
     Dates: start: 20090112, end: 20090112
  54. ASCORBIC ACID [Concomitant]
     Route: 042
     Dates: start: 20090117, end: 20090117
  55. ASCORBIC ACID [Concomitant]
     Route: 042
     Dates: start: 20090119, end: 20090119
  56. ASCORBIC ACID [Concomitant]
     Route: 042
     Dates: start: 20090121, end: 20090121
  57. ASCORBIC ACID [Concomitant]
     Route: 042
     Dates: start: 20090123, end: 20090123
  58. SODIUM PHOSPHATE, DIBASIC [Concomitant]
     Route: 042
     Dates: start: 20081229, end: 20090119
  59. PLATELET CONCENTRATE [Concomitant]
     Route: 042
     Dates: start: 20081229, end: 20081229
  60. PLATELET CONCENTRATE [Concomitant]
     Route: 042
     Dates: start: 20081231, end: 20081231
  61. PLATELET CONCENTRATE [Concomitant]
     Route: 042
     Dates: start: 20090102, end: 20090102
  62. PLATELET CONCENTRATE [Concomitant]
     Route: 042
     Dates: start: 20090106, end: 20090106
  63. PLATELET CONCENTRATE [Concomitant]
     Route: 042
     Dates: start: 20090116, end: 20090116
  64. PLATELET CONCENTRATE [Concomitant]
     Route: 042
     Dates: start: 20090121, end: 20090121
  65. FOLSAN [Concomitant]
     Route: 042
     Dates: start: 20081230, end: 20090102
  66. FOLSAN [Concomitant]
     Route: 042
     Dates: start: 20090104, end: 20090105
  67. FOLSAN [Concomitant]
     Route: 042
     Dates: start: 20090107, end: 20090109
  68. FOLSAN [Concomitant]
     Route: 042
     Dates: start: 20090111, end: 20090111
  69. FOLSAN [Concomitant]
     Route: 042
     Dates: start: 20090114, end: 20090116
  70. FOLSAN [Concomitant]
     Route: 042
     Dates: start: 20090118, end: 20090120
  71. FOLSAN [Concomitant]
     Route: 042
     Dates: start: 20090122, end: 20090122
  72. FOLSAN [Concomitant]
     Route: 042
     Dates: start: 20090124, end: 20090124
  73. POTASSIUM (UNSPECIFIED) [Concomitant]
     Route: 048
     Dates: start: 20090111, end: 20090111
  74. FAMVIR [Concomitant]
     Indication: VIRAL INFECTION
     Route: 048
     Dates: start: 20090121
  75. MOVICOL [Concomitant]
     Indication: CONSTIPATION
     Route: 048
     Dates: start: 20090122, end: 20090122
  76. DIPYRONE [Concomitant]
     Indication: PAIN
     Route: 042
     Dates: start: 20090122, end: 20090123
  77. PROBENECID [Concomitant]
     Route: 048
     Dates: start: 20090123, end: 20090123
  78. METOCLOPRAMIDE [Concomitant]
     Indication: NAUSEA
     Route: 042
     Dates: start: 20090123, end: 20090123
  79. VISTIDE [Concomitant]
     Indication: CYTOMEGALOVIRUS INFECTION
     Route: 042
     Dates: start: 20090123, end: 20090123

REACTIONS (4)
  - HUMAN POLYOMAVIRUS INFECTION [None]
  - MUCOSAL INFLAMMATION [None]
  - RASH [None]
  - TOXIC EPIDERMAL NECROLYSIS [None]
